FAERS Safety Report 11048071 (Version 1)
Quarter: 2015Q2

REPORT INFORMATION
  Report Type: Spontaneous
  Country: BR (occurrence: BR)
  Receive Date: 20150420
  Receipt Date: 20150420
  Transmission Date: 20150821
  Serious: Yes (Other)
  Sender: FDA-Public Use
  Company Number: BR-PFIZER INC-2015134361

PATIENT
  Age: 77 Year
  Sex: Female
  Weight: 62 kg

DRUGS (1)
  1. CELEBRA [Suspect]
     Active Substance: CELECOXIB
     Indication: PAIN
     Dosage: 200 MG (1 CAPSULE), 2X/DAY (EVERY 12 HOURS)
     Route: 048
     Dates: start: 2014, end: 2014

REACTIONS (2)
  - Gait disturbance [Unknown]
  - Pain [Unknown]
